FAERS Safety Report 10051340 (Version 2)
Quarter: 2014Q2

REPORT INFORMATION
  Report Type: Spontaneous
  Country: US (occurrence: US)
  Receive Date: 20140401
  Receipt Date: 20140519
  Transmission Date: 20141212
  Serious: No
  Sender: FDA-Public Use
  Company Number: US-PFIZER INC-2014088708

PATIENT
  Age: 59 Year
  Sex: Female

DRUGS (13)
  1. GABAPENTIN [Suspect]
     Dosage: UNK
  2. METHOTREXATE [Suspect]
     Dosage: UNK
  3. METOPROLOL TARTRATE [Suspect]
     Dosage: UNK
  4. MORPHINE SULFATE [Suspect]
     Dosage: UNK
  5. ATIVAN [Suspect]
     Dosage: UNK
  6. EFFEXOR [Suspect]
     Dosage: UNK
  7. NITROGLYCERIN [Suspect]
     Dosage: UNK
  8. AZATHIOPRINE [Suspect]
     Dosage: UNK
  9. AMITRIPTYLINE [Suspect]
     Dosage: UNK
  10. PLAVIX [Suspect]
     Dosage: UNK
  11. INDOCIN [Suspect]
     Dosage: UNK
  12. SAVELLA [Suspect]
     Dosage: UNK
  13. NABUMETONE [Suspect]
     Dosage: UNK

REACTIONS (1)
  - Drug hypersensitivity [Unknown]
